FAERS Safety Report 9617961 (Version 1)
Quarter: 2013Q4

REPORT INFORMATION
  Report Type: Spontaneous
  Country: US (occurrence: US)
  Receive Date: 20131011
  Receipt Date: 20131011
  Transmission Date: 20140711
  Serious: Yes (Hospitalization)
  Sender: FDA-Public Use
  Company Number: US-ROXANE LABORATORIES, INC.-2013-RO-01644RO

PATIENT
  Age: 63 Year
  Sex: Female
  Weight: 86 kg

DRUGS (10)
  1. CALCITRIOL [Suspect]
     Indication: SUPPLEMENTATION THERAPY
     Dosage: 0.5 MCG
     Route: 048
     Dates: start: 201304
  2. CELECOXIB;IBUPROFEN/NAPROXEN;PLACEBO (CODE NOT BROKEN) [Suspect]
     Indication: OSTEOARTHRITIS
     Route: 048
     Dates: start: 20110917, end: 20130329
  3. CELECOXIB;IBUPROFEN/NAPROXEN;PLACEBO (CODE NOT BROKEN) [Suspect]
     Indication: RHEUMATOID ARTHRITIS
  4. LEVOTHYROXINE SODIUM [Suspect]
     Indication: HYPOTHYROIDISM
     Dosage: 175 MCG
     Route: 048
     Dates: start: 201302
  5. CALCIUM CARBONATE [Suspect]
     Indication: SUPPLEMENTATION THERAPY
     Dosage: 6000 MG
     Route: 048
     Dates: start: 201304
  6. FLUOXETINE [Suspect]
     Indication: DEPRESSION
     Dosage: 20 MG
     Route: 048
     Dates: start: 201304
  7. TRAMADOL HCL [Suspect]
     Indication: PAIN
     Dosage: 200 MG
     Route: 048
  8. FERROUS SULPHATE [Suspect]
     Indication: ANAEMIA
     Route: 048
  9. NEXIUM [Concomitant]
     Indication: GASTROINTESTINAL DISORDER THERAPY
     Dosage: 40 MG
     Route: 048
     Dates: start: 20110917, end: 20130329
  10. AMLODIPINE [Concomitant]
     Indication: HYPERTENSION
     Dosage: 10 MG
     Route: 048
     Dates: start: 201304

REACTIONS (1)
  - Gastritis [Recovered/Resolved]
